FAERS Safety Report 7422510-5 (Version None)
Quarter: 2011Q2

REPORT INFORMATION
  Report Type: 
  Country: None (occurrence: None)
  Receive Date: 20110419
  Receipt Date: 20100128
  Transmission Date: 20111010
  Serious: No
  Sender: FDA-Public Use
  Company Number: 2010BI003249

PATIENT
  Age: 36 Year
  Sex: Female

DRUGS (1)
  1. TYSABRI [Suspect]
     Indication: MULTIPLE SCLEROSIS
     Route: 042
     Dates: start: 20090421

REACTIONS (4)
  - HEADACHE [None]
  - DYSPHONIA [None]
  - GENERAL SYMPTOM [None]
  - FEELING ABNORMAL [None]
